FAERS Safety Report 13399520 (Version 1)
Quarter: 2017Q2

REPORT INFORMATION
  Report Type: Spontaneous
  Country: DE (occurrence: DE)
  Receive Date: 20170404
  Receipt Date: 20170404
  Transmission Date: 20170830
  Serious: Yes (Other)
  Sender: FDA-Public Use
  Company Number: DE-ACCORD-049772

PATIENT
  Age: 38 Year

DRUGS (4)
  1. PREGABALIN. [Concomitant]
     Active Substance: PREGABALIN
     Dosage: 2 X 300 MG
  2. AMITRIPTYLINE [Suspect]
     Active Substance: AMITRIPTYLINE
     Indication: PRODUCT USED FOR UNKNOWN INDICATION
  3. DULOXETINE. [Concomitant]
     Active Substance: DULOXETINE
  4. CANNABIS SATIVA [Concomitant]
     Active Substance: CANNABIS SATIVA SUBSP. SATIVA FLOWERING TOP

REACTIONS (1)
  - Sedation [Unknown]
